FAERS Safety Report 5676969-4 (Version None)
Quarter: 2008Q1

REPORT INFORMATION
  Report Type: 
  Country: None (occurrence: None)
  Receive Date: 20080324
  Receipt Date: 20080319
  Transmission Date: 20080703
  Serious: Yes (Hospitalization)
  Sender: FDA-Public Use
  Company Number: US-BRISTOL-MYERS SQUIBB COMPANY-14120752

PATIENT
  Age: 70 Year
  Sex: Female
  Weight: 89 kg

DRUGS (15)
  1. PACLITAXEL [Suspect]
     Indication: BREAST CANCER
     Dosage: 90MG/M2 ON D1,D8,D10 INTERVAL Q21 DAYS. RECEIVED FROM 10JUL07 UNTIL 24DEC07.INTERRUPTED ON 06FEB08.
     Route: 042
     Dates: start: 20070710
  2. AVASTIN [Suspect]
     Indication: BREAST CANCER
     Dosage: 10MG/KG FREQ: Q21DAY D1, D15; INTER CYCLE 21 D.INTERRUPTED ON 06FEB08
     Route: 042
     Dates: start: 20070710
  3. GLUCOPHAGE [Concomitant]
     Route: 048
     Dates: start: 20000101
  4. ACTOS [Concomitant]
     Route: 048
  5. ALTACE [Concomitant]
     Route: 048
     Dates: start: 20000101
  6. VITAMIN CAP [Concomitant]
     Route: 048
     Dates: start: 20000101
  7. CALCIUM + VITAMIN D [Concomitant]
     Route: 048
     Dates: start: 20070520
  8. IRON [Concomitant]
     Route: 048
     Dates: start: 20070520, end: 20080215
  9. COLACE [Concomitant]
     Route: 048
     Dates: start: 20070520, end: 20080210
  10. DECADRON [Concomitant]
     Route: 048
     Dates: start: 20070609, end: 20080206
  11. ATIVAN [Concomitant]
     Route: 048
     Dates: start: 20070619, end: 20080215
  12. PEPCID AC [Concomitant]
     Route: 048
     Dates: start: 20070926, end: 20080215
  13. CELEBREX [Concomitant]
     Route: 048
     Dates: start: 20000101
  14. LASIX [Concomitant]
     Route: 048
     Dates: start: 20080104, end: 20080215
  15. ALDACTONE [Concomitant]
     Route: 048
     Dates: start: 20080104, end: 20080215

REACTIONS (4)
  - DEHYDRATION [None]
  - HYPOCALCAEMIA [None]
  - HYPOKALAEMIA [None]
  - MAGNESIUM DEFICIENCY [None]
